FAERS Safety Report 10057527 (Version 2)
Quarter: 2014Q2

REPORT INFORMATION
  Report Type: Report from Study
  Country: PT (occurrence: PT)
  Receive Date: 20140404
  Receipt Date: 20140515
  Transmission Date: 20141212
  Serious: Yes (Other)
  Sender: FDA-Public Use
  Company Number: PT-ROCHE-1375652

PATIENT
  Sex: 0

DRUGS (1)
  1. TENECTEPLASE [Suspect]
     Indication: PULMONARY EMBOLISM
     Dosage: WEIGHT-BASED REGIMEN
     Route: 065

REACTIONS (1)
  - Hypoxic-ischaemic encephalopathy [Unknown]
